FAERS Safety Report 18562914 (Version 1)
Quarter: 2020Q4

REPORT INFORMATION
  Report Type: Spontaneous
  Country: US (occurrence: US)
  Receive Date: 20201130
  Receipt Date: 20201130
  Transmission Date: 20210114
  Serious: No
  Sender: FDA-Public Use
  Company Number: US-ROCHE-2606061

PATIENT
  Age: 70 Year
  Sex: Female
  Weight: 56.75 kg

DRUGS (2)
  1. BETADINE (UNITED STATES) [Concomitant]
  2. LUCENTIS [Suspect]
     Active Substance: RANIBIZUMAB
     Indication: NEOVASCULAR AGE-RELATED MACULAR DEGENERATION
     Dosage: IN BOTH EYES.
     Route: 050
     Dates: start: 20200417

REACTIONS (4)
  - Erythema [Unknown]
  - Vision blurred [Unknown]
  - Pain [Unknown]
  - Eye pain [Recovering/Resolving]

NARRATIVE: CASE EVENT DATE: 20200519
